FAERS Safety Report 6781436-0 (Version None)
Quarter: 2010Q2

REPORT INFORMATION
  Report Type: 
  Country: None (occurrence: None)
  Receive Date: 20100621
  Receipt Date: 20100610
  Transmission Date: 20101027
  Serious: No
  Sender: FDA-Public Use
  Company Number: JP-ROCHE-699505

PATIENT
  Sex: Female

DRUGS (15)
  1. CAPECITABINE [Suspect]
     Indication: COLON CANCER
     Dosage: DRUG: XELODA 300 (CAPECITABINE)
     Route: 048
     Dates: start: 20090724, end: 20090806
  2. CAPECITABINE [Suspect]
     Route: 048
     Dates: start: 20090814, end: 20090827
  3. CAPECITABINE [Suspect]
     Route: 048
     Dates: start: 20090918, end: 20091001
  4. CAPECITABINE [Suspect]
     Route: 048
     Dates: start: 20091009, end: 20091022
  5. CAPECITABINE [Suspect]
     Route: 048
     Dates: start: 20091030, end: 20091112
  6. CAPECITABINE [Suspect]
     Route: 048
     Dates: start: 20091120, end: 20091203
  7. CAPECITABINE [Suspect]
     Route: 048
     Dates: start: 20091211, end: 20091224
  8. CAPECITABINE [Suspect]
     Route: 048
     Dates: start: 20100108, end: 20100121
  9. NORVASC [Concomitant]
     Route: 048
  10. SIGMART [Concomitant]
     Dosage: DRUG: SIGMART TABLETS
     Route: 048
  11. RIZE [Concomitant]
     Dosage: FORM: PERORAL AGENT
     Route: 048
  12. GASTROM [Concomitant]
     Dosage: FORM: GRANULATED POWDER
     Route: 048
  13. GASTER D [Concomitant]
     Route: 048
  14. SIMVASTATIN [Concomitant]
     Route: 048
  15. PYDOXAL [Concomitant]
     Dosage: DRUG: PYDOXAL TAB; NOTE: THE WITHDRAWAL IS SAME AS XELODA
     Route: 048
     Dates: start: 20090724, end: 20100121

REACTIONS (3)
  - ASPARTATE AMINOTRANSFERASE INCREASED [None]
  - BLOOD BILIRUBIN INCREASED [None]
  - DYSGEUSIA [None]
